FAERS Safety Report 15451771 (Version 1)
Quarter: 2018Q3

REPORT INFORMATION
  Report Type: Spontaneous
  Country: US (occurrence: US)
  Receive Date: 20180927
  Receipt Date: 20180927
  Transmission Date: 20181010
  Serious: Yes (Hospitalization)
  Sender: FDA-Public Use
  Company Number: None

PATIENT
  Age: 64 Year
  Sex: Male
  Weight: 80.74 kg

DRUGS (11)
  1. AXTACANTAEN [Concomitant]
  2. FLAXSEED [Concomitant]
     Active Substance: FLAX SEED
  3. CODLIVER OIL [Concomitant]
  4. POTASSIUM [Concomitant]
     Active Substance: POTASSIUM
  5. ASPIRIN. [Concomitant]
     Active Substance: ASPIRIN
  6. GARLIC. [Concomitant]
     Active Substance: GARLIC
  7. MILK THISTLE [Concomitant]
     Active Substance: DIETARY SUPPLEMENT\HERBALS\MILK THISTLE
  8. GOJI  BERRIES [Concomitant]
  9. KEFLEX [Suspect]
     Active Substance: CEPHALEXIN
     Indication: POST PROCEDURAL INFECTION
  10. LISINOPRIL 20 MG QD [Concomitant]
  11. CORDICEPS [Concomitant]

REACTIONS (1)
  - Vomiting [None]
